FAERS Safety Report 7812776-1 (Version None)
Quarter: 2011Q4

REPORT INFORMATION
  Report Type: 
  Country: None (occurrence: None)
  Receive Date: 20111011
  Receipt Date: 20110928
  Transmission Date: 20120403
  Serious: Yes (Hospitalization, Other)
  Sender: FDA-Public Use
  Company Number: DSA_42619_2010

PATIENT
  Age: 80 Year
  Sex: Female

DRUGS (6)
  1. DICLOFENAC SODIUM [Suspect]
     Indication: ERYTHEMA MULTIFORME
     Dosage: (DF, GIVEN TWICE AT NIGHT ON ADMISSION DAY RECTAL)
     Route: 054
  2. TELMISARTAN (MICARDIS) [Suspect]
     Indication: PRODUCT USED FOR UNKNOWN INDICATION
     Dosage: (DF ORAL)
     Route: 048
  3. CEFDINIR [Suspect]
     Indication: PRODUCT USED FOR UNKNOWN INDICATION
     Dosage: (DF)
  4. DILTIAZEM HYDROCHLORIDE [Suspect]
     Indication: PRODUCT USED FOR UNKNOWN INDICATION
     Dosage: (DF ORAL)
     Route: 048
  5. SUCRALFATE [Suspect]
     Indication: ERYTHEMA MULTIFORME
     Dosage: (DF)
  6. ACETAMINOPHEN [Suspect]
     Indication: ERYTHEMA MULTIFORME
     Dosage: (DF)

REACTIONS (4)
  - LYMPHOCYTE STIMULATION TEST POSITIVE [None]
  - BLOOD UREA NITROGEN/CREATININE RATIO INCREASED [None]
  - DEHYDRATION [None]
  - ACUTE GENERALISED EXANTHEMATOUS PUSTULOSIS [None]
